FAERS Safety Report 15916584 (Version 3)
Quarter: 2019Q1

REPORT INFORMATION
  Report Type: Report from Study
  Country: None (occurrence: US)
  Receive Date: 20190205
  Receipt Date: 20190220
  Transmission Date: 20190417
  Serious: Yes (Hospitalization, Other)
  Sender: FDA-Public Use
  Company Number: US-ABBVIE-19S-163-2647499-00

PATIENT
  Age: 76 Year
  Sex: Male
  Weight: 86.26 kg

DRUGS (2)
  1. OMEPRAZOLE. [Concomitant]
     Active Substance: OMEPRAZOLE
     Indication: GASTROOESOPHAGEAL REFLUX DISEASE
  2. ANDROGEL [Suspect]
     Active Substance: TESTOSTERONE
     Indication: BLOOD TESTOSTERONE DECREASED
     Route: 061
     Dates: start: 20120221

REACTIONS (48)
  - Atrial fibrillation [Not Recovered/Not Resolved]
  - Osteoarthritis [Unknown]
  - Dermatitis contact [Unknown]
  - Type 2 diabetes mellitus [Unknown]
  - Arthropathy [Unknown]
  - Localised oedema [Unknown]
  - Neck pain [Unknown]
  - Inguinal hernia [Unknown]
  - Diverticulum intestinal [Unknown]
  - Weight decreased [Unknown]
  - Haemorrhagic anaemia [Recovered/Resolved]
  - Acute stress disorder [Unknown]
  - Pathological fracture [Unknown]
  - Hyperlipidaemia [Unknown]
  - Sleep apnoea syndrome [Unknown]
  - Cellulitis [Unknown]
  - Gastrooesophageal reflux disease [Unknown]
  - Pain in extremity [Unknown]
  - Cardiac valve prosthesis user [Unknown]
  - Muscular weakness [Unknown]
  - Cholelithiasis obstructive [Unknown]
  - Dizziness [Unknown]
  - Dyspnoea [Unknown]
  - Deep vein thrombosis [Unknown]
  - Deep vein thrombosis [Not Recovered/Not Resolved]
  - Atrial fibrillation [Unknown]
  - Myositis [Unknown]
  - Pleural effusion [Unknown]
  - Fatigue [Unknown]
  - Rib fracture [Unknown]
  - Dysuria [Unknown]
  - Contusion [Unknown]
  - Musculoskeletal pain [Unknown]
  - Urinary tract infection [Unknown]
  - Arthralgia [Unknown]
  - Iron deficiency anaemia [Unknown]
  - Abnormal loss of weight [Unknown]
  - Acute sinusitis [Unknown]
  - Visual impairment [Unknown]
  - Back pain [Unknown]
  - Asthenia [Unknown]
  - Deep vein thrombosis [Unknown]
  - Cellulitis [Unknown]
  - Pain in extremity [Unknown]
  - Cardiac failure [Not Recovered/Not Resolved]
  - Gait disturbance [Unknown]
  - Essential hypertension [Unknown]
  - Cyst [Unknown]

NARRATIVE: CASE EVENT DATE: 20130228
